FAERS Safety Report 14102858 (Version 1)
Quarter: 2017Q4

REPORT INFORMATION
  Report Type: Spontaneous
  Country: FR (occurrence: FR)
  Receive Date: 20171018
  Receipt Date: 20171018
  Transmission Date: 20180321
  Serious: Yes (Hospitalization)
  Sender: FDA-Public Use
  Company Number: FR-JNJFOC-20171013130

PATIENT
  Age: 84 Year
  Sex: Male

DRUGS (13)
  1. DUROGESIC [Suspect]
     Active Substance: FENTANYL
     Indication: PAIN
     Route: 062
     Dates: start: 20170905
  2. MOVICOL [Concomitant]
     Active Substance: POLYETHYLENE GLYCOL 3350\POTASSIUM CHLORIDE\SODIUM BICARBONATE\SODIUM CHLORIDE
     Route: 065
  3. LOXEN (NICARDIPINE HYDROCHLORIDE) [Concomitant]
     Active Substance: NICARDIPINE HYDROCHLORIDE
     Route: 065
  4. PANTOPRAZOLE [Concomitant]
     Active Substance: PANTOPRAZOLE
     Route: 065
  5. DISCOTRINE [Concomitant]
     Active Substance: NITROGLYCERIN
     Route: 065
  6. SELOKEN [Concomitant]
     Active Substance: METOPROLOL
     Route: 065
  7. LORMETAZEPAM [Suspect]
     Active Substance: LORMETAZEPAM
     Indication: SLEEP DISORDER
     Route: 065
  8. LIPANTHYL [Concomitant]
     Active Substance: FENOFIBRATE
     Route: 065
  9. SPECIAFOLDINE [Concomitant]
     Active Substance: FOLIC ACID
     Route: 065
  10. DOLIPRANE [Concomitant]
     Active Substance: ACETAMINOPHEN
     Route: 065
  11. KARDEGIC [Concomitant]
     Active Substance: ASPIRIN DL-LYSINE
     Route: 065
  12. LAROXYL [Suspect]
     Active Substance: AMITRIPTYLINE HYDROCHLORIDE
     Indication: PRODUCT USED FOR UNKNOWN INDICATION
     Dosage: 2 DROPS IN THE MORNING AND 5 DROPS IN THE EVENING
     Route: 048
  13. XATRAL [Concomitant]
     Active Substance: ALFUZOSIN
     Route: 065

REACTIONS (2)
  - Oxygen saturation decreased [Recovered/Resolved]
  - Urinary retention [Recovering/Resolving]

NARRATIVE: CASE EVENT DATE: 20170906
